FAERS Safety Report 21143904 (Version 3)
Quarter: 2022Q3

REPORT INFORMATION
  Report Type: Report from Study
  Country: CH (occurrence: CH)
  Receive Date: 20220728
  Receipt Date: 20220813
  Transmission Date: 20221026
  Serious: Yes (Hospitalization)
  Sender: FDA-Public Use
  Company Number: CH-NOVARTISPH-NVSC2022CH164228

PATIENT
  Age: 79 Year
  Sex: Male
  Weight: 82.2 kg

DRUGS (22)
  1. NAPORAFENIB [Suspect]
     Active Substance: NAPORAFENIB
     Indication: Malignant melanoma
     Dosage: 200 MG, BID
     Route: 048
     Dates: start: 20220218, end: 20220708
  2. TRAMETINIB [Suspect]
     Active Substance: TRAMETINIB
     Indication: Malignant melanoma
     Dosage: 1 MG, QD
     Route: 048
     Dates: start: 20220218, end: 20220708
  3. LINOLA [Concomitant]
     Indication: Rash papular
     Dosage: UNK
     Route: 065
     Dates: start: 20220311
  4. AMLODIPINE BESYLATE [Concomitant]
     Active Substance: AMLODIPINE BESYLATE
     Indication: Hypertension
     Dosage: UNK
     Route: 065
     Dates: start: 2007
  5. PRURI-MED [Concomitant]
     Indication: Rash papular
     Dosage: UNK
     Route: 065
     Dates: start: 20220218
  6. PRURI-MED [Concomitant]
     Indication: Prophylaxis
     Dosage: UNK
     Route: 065
     Dates: start: 20220311
  7. BILASTINE [Concomitant]
     Active Substance: BILASTINE
     Indication: Rash papular
     Dosage: UNK
     Route: 065
     Dates: start: 20220311
  8. ELIDEL [Concomitant]
     Active Substance: PIMECROLIMUS
     Indication: Rash papular
     Dosage: UNK
     Route: 065
     Dates: start: 20220611
  9. BEPANTHEN [Concomitant]
     Indication: Prophylaxis
     Dosage: UNK
     Route: 065
     Dates: start: 20220611
  10. CLOBETASOL [Concomitant]
     Active Substance: CLOBETASOL
     Indication: Rash papular
     Dosage: UNK
     Route: 065
     Dates: start: 20220610
  11. CLOBETASOL [Concomitant]
     Active Substance: CLOBETASOL
     Dosage: UNK
     Route: 065
     Dates: start: 20220708
  12. TORSEMIDE [Concomitant]
     Active Substance: TORSEMIDE
     Indication: Oedema peripheral
     Dosage: UNK
     Route: 065
     Dates: start: 20220629
  13. CARBAMID [Concomitant]
     Indication: Rash papular
     Dosage: UNK
     Route: 065
     Dates: start: 20220628, end: 20220708
  14. DOXYCYCLINE [Concomitant]
     Active Substance: DOXYCYCLINE
     Indication: Rash papular
     Dosage: UNK
     Route: 065
     Dates: start: 20220629
  15. VALSARTAN [Concomitant]
     Active Substance: VALSARTAN
     Indication: Hypertension
     Dosage: UNK
     Route: 065
     Dates: start: 2007
  16. CALCIUM [Concomitant]
     Active Substance: CALCIUM
     Indication: General physical condition
     Dosage: UNK
     Route: 065
     Dates: start: 20220119
  17. VITAMIN D3 [Concomitant]
     Active Substance: CHOLECALCIFEROL
     Indication: General physical condition
     Dosage: UNK
     Route: 065
     Dates: start: 20220119
  18. BUTYLSCOPOLAMINE BROMIDE [Concomitant]
     Active Substance: BUTYLSCOPOLAMINE BROMIDE
     Indication: Abdominal pain
     Dosage: UNK
     Route: 065
     Dates: start: 20220225
  19. GAVISCON [Concomitant]
     Active Substance: ALUMINUM HYDROXIDE\MAGNESIUM CARBONATE
     Indication: Abdominal pain
     Dosage: UNK
     Route: 065
     Dates: start: 20220225
  20. DAFALGAN [Concomitant]
     Active Substance: ACETAMINOPHEN
     Indication: Abdominal pain
     Dosage: UNK
     Route: 065
     Dates: start: 20220225
  21. ORACEA [Concomitant]
     Active Substance: DOXYCYCLINE
     Indication: Rash pustular
     Dosage: UNK
     Route: 065
     Dates: start: 20220307
  22. ORACEA [Concomitant]
     Active Substance: DOXYCYCLINE
     Indication: Rash papular

REACTIONS (1)
  - Rash maculo-papular [Recovered/Resolved]

NARRATIVE: CASE EVENT DATE: 20220718
